FAERS Safety Report 21454973 (Version 2)
Quarter: 2022Q4

REPORT INFORMATION
  Report Type: Spontaneous
  Country: CL (occurrence: CL)
  Receive Date: 20221014
  Receipt Date: 20221021
  Transmission Date: 20230113
  Serious: Yes (Hospitalization, Other)
  Sender: FDA-Public Use
  Company Number: CL-CELLTRION INC.-2022CL016430

PATIENT

DRUGS (7)
  1. TRUXIMA [Suspect]
     Active Substance: RITUXIMAB-ABBS
     Indication: Non-Hodgkin^s lymphoma
     Dosage: 750 MG DISSOLVED IN 500 MILLILITERS OF SALINE SOLUTION, 1/WEEK
     Route: 042
     Dates: start: 20221004, end: 20221004
  2. TRUXIMA [Suspect]
     Active Substance: RITUXIMAB-ABBS
     Indication: Splenic marginal zone lymphoma stage IV
     Dosage: (CONCENTRATION: 500 MG)
     Route: 041
     Dates: start: 20221004, end: 20221004
  3. TRUXIMA [Suspect]
     Active Substance: RITUXIMAB-ABBS
     Indication: Lymphoma
     Dosage: 250 MILLIGRAM (CONCENTRATION: 100 MG)
     Route: 041
     Dates: start: 20221004, end: 20221004
  4. TRUXIMA [Suspect]
     Active Substance: RITUXIMAB-ABBS
     Dosage: UNK
     Dates: start: 20220701, end: 20220722
  5. ALLOPURINOL [Concomitant]
     Active Substance: ALLOPURINOL
     Indication: Gout
     Dosage: 100 MG, DAILY
     Route: 048
  6. DORMONID [MIDAZOLAM] [Concomitant]
     Indication: Anaesthesia
     Dosage: 5 MILLIGRAM
     Route: 042
     Dates: start: 20221004, end: 20221004
  7. FENTANYL [Concomitant]
     Active Substance: FENTANYL
     Indication: Anaesthesia
     Dosage: 50 MICROGRAM
     Route: 042
     Dates: start: 20221004, end: 20221004

REACTIONS (8)
  - Thrombocytopenia [Recovering/Resolving]
  - Feeling hot [Recovered/Resolved]
  - Drug tolerance decreased [Unknown]
  - Throat tightness [Recovered/Resolved]
  - Flushing [Recovered/Resolved]
  - Nausea [Recovered/Resolved]
  - Vomiting [Recovered/Resolved]
  - Hypertension [Recovered/Resolved]

NARRATIVE: CASE EVENT DATE: 20221004
